FAERS Safety Report 6067147-8 (Version None)
Quarter: 2009Q1

REPORT INFORMATION
  Report Type: 
  Country: None (occurrence: None)
  Receive Date: 20090205
  Receipt Date: 20090126
  Transmission Date: 20090719
  Serious: Yes (Hospitalization, Other)
  Sender: FDA-Public Use
  Company Number: GB-JNJCH-2009002974

PATIENT
  Age: 56 Year
  Sex: Female

DRUGS (6)
  1. DIPHENHYDRAMINE HCL [Suspect]
     Indication: DRUG ABUSE
     Route: 048
  2. LORAZEPAM [Suspect]
     Indication: INSOMNIA
     Dosage: TEXT:2 MG DAILY
     Route: 065
  3. TEMAZEPAM [Suspect]
     Indication: INSOMNIA
     Dosage: TEXT:40 MG DAILY
     Route: 065
  4. VENLAFAXINE HCL [Suspect]
     Indication: DEPRESSION
     Dosage: TEXT:225 MG DAILY
     Route: 065
  5. OLANZAPINE [Suspect]
     Indication: SCHIZOPHRENIA
     Dosage: TEXT:10 MG DAILY
     Route: 065
  6. FLUPENTIXOL [Suspect]
     Indication: SCHIZOPHRENIA
     Dosage: TEXT:150 IM DEPOT WEEKLY
     Route: 030

REACTIONS (9)
  - ACCIDENTAL OVERDOSE [None]
  - CONVULSION [None]
  - FATIGUE [None]
  - INSOMNIA [None]
  - LOSS OF CONSCIOUSNESS [None]
  - MEMORY IMPAIRMENT [None]
  - THERAPEUTIC RESPONSE UNEXPECTED [None]
  - TREMOR [None]
  - WITHDRAWAL SYNDROME [None]
